FAERS Safety Report 24382691 (Version 1)
Quarter: 2024Q4

REPORT INFORMATION
  Report Type: Spontaneous
  Country: US (occurrence: US)
  Receive Date: 20241001
  Receipt Date: 20241001
  Transmission Date: 20250115
  Serious: Yes (Hospitalization, Other)
  Sender: RANBAXY
  Company Number: US-SUN PHARMACEUTICAL INDUSTRIES LTD-2024R1-469979

PATIENT
  Age: 82 Year
  Sex: Male

DRUGS (1)
  1. TRIAMCINOLONE [Suspect]
     Active Substance: TRIAMCINOLONE
     Indication: Cystoid macular oedema
     Dosage: 20 MILLIGRAM IN EACH EYE EVERY 3 MONTHS
     Route: 047

REACTIONS (2)
  - Cushing^s syndrome [Recovered/Resolved]
  - Disease progression [Unknown]
